FAERS Safety Report 5008607-8 (Version None)
Quarter: 2006Q2

REPORT INFORMATION
  Report Type: 
  Country: None (occurrence: None)
  Receive Date: 20060523
  Receipt Date: 20060512
  Transmission Date: 20061013
  Serious: Yes (Other)
  Sender: FDA-Public Use
  Company Number: DE-ROCHE-447895

PATIENT
  Age: 45 Year
  Sex: Female

DRUGS (9)
  1. UNAT [Suspect]
     Indication: CORONARY ARTERY DISEASE
     Route: 048
     Dates: start: 20050215
  2. ALDACTONE [Suspect]
     Indication: DRUG USE FOR UNKNOWN INDICATION
     Route: 048
     Dates: start: 20050215
  3. COVERSUM [Suspect]
     Indication: CORONARY ARTERY DISEASE
     Dosage: DRUG REPORTED AS COVERSUM (PERINDOPRIL ERBUMINE)
     Route: 048
     Dates: start: 20050215
  4. IBUPROFEN [Concomitant]
     Route: 048
     Dates: start: 20050815, end: 20050815
  5. BLOPRESS [Concomitant]
     Indication: HYPERTENSION
     Route: 048
     Dates: start: 20050215
  6. CONCOR [Concomitant]
     Indication: CORONARY ARTERY DISEASE
     Dosage: REPORTED AS ^CONCOR COR^
     Route: 048
     Dates: start: 20050215
  7. FEMOVAN [Concomitant]
     Indication: CONTRACEPTION
     Route: 048
  8. ASPIRIN [Concomitant]
     Indication: CORONARY ARTERY DISEASE
     Route: 048
     Dates: start: 20050215, end: 20050922
  9. THOMAPYRIN [Concomitant]
     Route: 048

REACTIONS (1)
  - APLASTIC ANAEMIA [None]
